FAERS Safety Report 10084549 (Version 2)
Quarter: 2014Q2

REPORT INFORMATION
  Report Type: Report from Study
  Country: JP (occurrence: JP)
  Receive Date: 20140417
  Receipt Date: 20140521
  Transmission Date: 20141212
  Serious: No
  Sender: FDA-Public Use
  Company Number: JP-GLAXOSMITHKLINE-B0959936A

PATIENT
  Age: 59 Year
  Sex: Male

DRUGS (31)
  1. ARZERRA [Suspect]
     Indication: DIFFUSE LARGE B-CELL LYMPHOMA
     Dosage: 300MG PER DAY
     Route: 042
     Dates: start: 20140107, end: 20140107
  2. ARZERRA [Suspect]
     Indication: DIFFUSE LARGE B-CELL LYMPHOMA
     Dosage: 2000MG PER DAY
     Route: 042
     Dates: start: 20140114, end: 20140114
  3. ARZERRA [Suspect]
     Indication: DIFFUSE LARGE B-CELL LYMPHOMA
     Dosage: 2000MG PER DAY
     Route: 042
     Dates: start: 20140121, end: 20140121
  4. ARZERRA [Suspect]
     Indication: DIFFUSE LARGE B-CELL LYMPHOMA
     Dosage: 2000MG PER DAY
     Route: 042
     Dates: start: 20140128, end: 20140128
  5. ARZERRA [Suspect]
     Indication: DIFFUSE LARGE B-CELL LYMPHOMA
     Dosage: 2000MG PER DAY
     Route: 042
     Dates: start: 20140204, end: 20140204
  6. ARZERRA [Suspect]
     Indication: DIFFUSE LARGE B-CELL LYMPHOMA
     Dosage: 2000MG PER DAY
     Route: 042
     Dates: start: 20140210, end: 20140210
  7. ARZERRA [Suspect]
     Indication: DIFFUSE LARGE B-CELL LYMPHOMA
     Dosage: 2000MG PER DAY
     Route: 042
     Dates: start: 20140217, end: 20140217
  8. PREDNISOLONE [Concomitant]
     Dosage: 100MG PER DAY
     Route: 065
     Dates: start: 20140107, end: 20140107
  9. PREDNISOLONE [Concomitant]
     Dosage: 100MG PER DAY
     Route: 065
     Dates: start: 20140114, end: 20140114
  10. PREDNISOLONE [Concomitant]
     Dosage: 100MG PER DAY
     Route: 065
     Dates: start: 20140121, end: 20140121
  11. PREDNISOLONE [Concomitant]
     Dosage: 100MG PER DAY
     Route: 065
     Dates: start: 20140128, end: 20140128
  12. PREDNISOLONE [Concomitant]
     Dosage: 100MG PER DAY
     Route: 065
     Dates: start: 20140204, end: 20140204
  13. PREDNISOLONE [Concomitant]
     Dosage: 100MG PER DAY
     Route: 065
     Dates: start: 20140210, end: 20140210
  14. PREDNISOLONE [Concomitant]
     Dosage: 100MG PER DAY
     Route: 065
     Dates: start: 20140217, end: 20140217
  15. ACETAMINOPHEN [Concomitant]
     Dosage: .5G PER DAY
     Route: 065
     Dates: start: 20140107, end: 20140107
  16. ACETAMINOPHEN [Concomitant]
     Dosage: .5G PER DAY
     Route: 065
     Dates: start: 20140114, end: 20140114
  17. ACETAMINOPHEN [Concomitant]
     Dosage: .5G PER DAY
     Route: 065
     Dates: start: 20140121, end: 20140121
  18. ACETAMINOPHEN [Concomitant]
     Dosage: .5G PER DAY
     Route: 065
     Dates: start: 20140128, end: 20140128
  19. ACETAMINOPHEN [Concomitant]
     Dosage: .5G PER DAY
     Route: 065
     Dates: start: 20140204, end: 20140204
  20. ACETAMINOPHEN [Concomitant]
     Dosage: .5G PER DAY
     Route: 065
     Dates: start: 20140210, end: 20140210
  21. ACETAMINOPHEN [Concomitant]
     Dosage: .5G PER DAY
     Route: 065
     Dates: start: 20140217, end: 20140217
  22. RESTAMIN [Concomitant]
     Dosage: 30MG PER DAY
     Route: 065
     Dates: start: 20140107, end: 20140107
  23. RESTAMIN [Concomitant]
     Dosage: 30MG PER DAY
     Route: 065
     Dates: start: 20140114, end: 20140114
  24. RESTAMIN [Concomitant]
     Dosage: 30MG PER DAY
     Route: 065
     Dates: start: 20140121, end: 20140121
  25. RESTAMIN [Concomitant]
     Dosage: 30MG PER DAY
     Route: 065
     Dates: start: 20140128, end: 20140128
  26. RESTAMIN [Concomitant]
     Dosage: 30MG PER DAY
     Route: 065
     Dates: start: 20140204, end: 20140204
  27. RESTAMIN [Concomitant]
     Dosage: 30MG PER DAY
     Route: 065
     Dates: start: 20140210, end: 20140210
  28. RESTAMIN [Concomitant]
     Dosage: 30MG PER DAY
     Route: 065
     Dates: start: 20140217, end: 20140217
  29. BAKTAR [Concomitant]
     Indication: INFECTION PROPHYLAXIS
     Route: 048
  30. DIFLUCAN [Concomitant]
     Indication: INFECTION PROPHYLAXIS
     Route: 048
  31. VICCLOX [Concomitant]
     Indication: INFECTION PROPHYLAXIS
     Route: 065
     Dates: start: 20140107

REACTIONS (2)
  - Pruritus [Recovering/Resolving]
  - Inflammation [Recovering/Resolving]
